FAERS Safety Report 15057001 (Version 2)
Quarter: 2018Q3

REPORT INFORMATION
  Report Type: Spontaneous
  Country: US (occurrence: US)
  Receive Date: 20180624
  Receipt Date: 20180709
  Transmission Date: 20181010
  Serious: No
  Sender: FDA-Public Use
  Company Number: US-JNJFOC-20180606990

PATIENT
  Age: 65 Year
  Sex: Male
  Weight: 113.4 kg

DRUGS (14)
  1. AMIODARONE [Concomitant]
     Active Substance: AMIODARONE
     Indication: ATRIAL FIBRILLATION
     Dosage: FOR 2 YEARS
     Route: 065
     Dates: start: 2016
  2. ENTRESTO [Concomitant]
     Active Substance: SACUBITRIL\VALSARTAN
     Indication: CARDIAC FAILURE
     Dosage: FOR 6 MONTHS
     Route: 065
     Dates: start: 201804
  3. ENTRESTO [Concomitant]
     Active Substance: SACUBITRIL\VALSARTAN
     Indication: ATRIAL FIBRILLATION
     Dosage: FOR 6 MONTHS
     Route: 065
     Dates: start: 201804
  4. PRILOSEC [Concomitant]
     Active Substance: OMEPRAZOLE MAGNESIUM
     Indication: DYSPEPSIA
     Dosage: FOR 12 YEARS
     Route: 065
     Dates: start: 2002
  5. PRILOSEC [Concomitant]
     Active Substance: OMEPRAZOLE MAGNESIUM
     Indication: GASTROOESOPHAGEAL REFLUX DISEASE
     Dosage: FOR 12 YEARS
     Route: 065
     Dates: start: 2002
  6. COREG [Concomitant]
     Active Substance: CARVEDILOL
     Indication: BLOOD PRESSURE ABNORMAL
     Dosage: FOR 3 YEARS
     Route: 065
     Dates: start: 2015
  7. AMIODARONE [Concomitant]
     Active Substance: AMIODARONE
     Indication: CARDIAC DISORDER
     Dosage: FOR 2 YEARS
     Route: 065
     Dates: start: 2016
  8. LEVOTHYROXINE. [Concomitant]
     Active Substance: LEVOTHYROXINE
     Indication: THYROID DISORDER
     Dosage: FOR 1 YEAR
     Route: 065
     Dates: start: 201708
  9. XARELTO [Suspect]
     Active Substance: RIVAROXABAN
     Indication: THROMBOSIS PROPHYLAXIS
     Route: 048
     Dates: start: 20180426, end: 20180430
  10. METFORMIN [Concomitant]
     Active Substance: METFORMIN HYDROCHLORIDE
     Indication: DIABETES MELLITUS
     Route: 065
     Dates: start: 2002
  11. CALCIUM [Concomitant]
     Active Substance: CALCIUM
     Indication: BONE DISORDER
     Dosage: FOR 12 YEARS
     Route: 065
  12. SERTRALINE [Concomitant]
     Active Substance: SERTRALINE HYDROCHLORIDE
     Indication: ANTIDEPRESSANT THERAPY
     Route: 065
     Dates: start: 1998
  13. ASPIRIN. [Concomitant]
     Active Substance: ASPIRIN
     Indication: CARDIAC DISORDER
     Dosage: FOR 12 YEARS
     Route: 065
  14. ZOLOFT [Concomitant]
     Active Substance: SERTRALINE HYDROCHLORIDE
     Indication: MELATONIN DEFICIENCY
     Dosage: FOR 15 YEARS
     Route: 065

REACTIONS (2)
  - Postoperative wound complication [Recovered/Resolved]
  - Incision site haemorrhage [Recovered/Resolved]

NARRATIVE: CASE EVENT DATE: 20180427
